FAERS Safety Report 10934211 (Version 2)
Quarter: 2015Q3

REPORT INFORMATION
  Report Type: Spontaneous
  Country: IT (occurrence: IT)
  Receive Date: 20150320
  Receipt Date: 20150720
  Transmission Date: 20151125
  Serious: Yes (Hospitalization)
  Sender: FDA-Public Use
  Company Number: IT-TEVA-548385ACC

PATIENT
  Age: 83 Year
  Sex: Female

DRUGS (7)
  1. ACTONEL - 35 MG COMPRESSE RIVESTITE CON FILM [Concomitant]
     Indication: PRODUCT USED FOR UNKNOWN INDICATION
  2. CONGESCOR - COMPRESSE 1.25 MG [Concomitant]
     Indication: PRODUCT USED FOR UNKNOWN INDICATION
  3. LEVOFLOXACIN HEMIHYDRATE [Suspect]
     Active Substance: LEVOFLOXACIN
     Indication: PRODUCT USED FOR UNKNOWN INDICATION
     Dosage: 500 MILLIGRAM DAILY;
     Route: 048
     Dates: start: 20141216, end: 20150123
  4. ESOPRAL - 20 MG COMPRESSE GASTRORESISTENTI [Concomitant]
     Indication: PRODUCT USED FOR UNKNOWN INDICATION
     Dosage: GASTRO-RESISTANT TABLET
  5. PRITOR 40 MG - COMPRESSE [Concomitant]
     Indication: PRODUCT USED FOR UNKNOWN INDICATION
  6. DIDROGYL - 1,5 MG/10 ML GOCCE ORALI, SOLUZIONE [Concomitant]
     Indication: PRODUCT USED FOR UNKNOWN INDICATION
     Dosage: 1,5 MG/10 ML, ORAL DROPS, SOLUTION
  7. COUMADIN [Interacting]
     Active Substance: WARFARIN SODIUM
     Indication: ATRIAL FIBRILLATION
     Dosage: 1 DF AS NECESSARY
     Route: 048
     Dates: start: 20100101, end: 20141223

REACTIONS (2)
  - Drug interaction [Recovered/Resolved]
  - Hypocoagulable state [Recovered/Resolved]

NARRATIVE: CASE EVENT DATE: 20141224
